FAERS Safety Report 6108425-3 (Version None)
Quarter: 2009Q1

REPORT INFORMATION
  Report Type: 
  Country: None (occurrence: None)
  Receive Date: 20090309
  Receipt Date: 20090309
  Transmission Date: 20090719
  Serious: Yes (Other)
  Sender: FDA-Public Use
  Company Number: CH-PFIZER INC-2009174472

PATIENT

DRUGS (7)
  1. FLUCONAZOLE [Suspect]
     Indication: CANDIDIASIS
     Route: 048
     Dates: start: 20090127, end: 20090129
  2. VELCADE [Interacting]
     Indication: PLASMACYTOMA
     Dosage: 1.3 MG/M2, 1X/DAY
     Route: 042
     Dates: start: 20090128, end: 20090128
  3. ALDACTONE [Concomitant]
     Dosage: UNK
     Route: 048
     Dates: start: 20090115
  4. TRAMADOL [Concomitant]
     Dosage: 50 MG, 4X/DAY
     Route: 048
     Dates: start: 20090112
  5. DEXAMETHASONE [Concomitant]
     Dosage: UNK
     Route: 048
     Dates: start: 20090128, end: 20090131
  6. LORAZEPAM [Concomitant]
     Dosage: 1 MG, 2X/DAY
     Route: 048
     Dates: start: 20090127
  7. VALACYCLOVIR HCL [Concomitant]
     Dosage: 500 MG, 3X/DAY
     Route: 048
     Dates: start: 20090127

REACTIONS (1)
  - SINUS BRADYCARDIA [None]
